FAERS Safety Report 5193476-6 (Version None)
Quarter: 2006Q4

REPORT INFORMATION
  Report Type: 
  Country: None (occurrence: None)
  Receive Date: 20061228
  Receipt Date: 20060512
  Transmission Date: 20070319
  Serious: No
  Sender: FDA-Public Use
  Company Number: US-GLAXOSMITHKLINE-A0605409A

PATIENT
  Age: 82 Year
  Sex: Female

DRUGS (6)
  1. FLONASE [Suspect]
     Dosage: 1PUFF TWICE PER DAY
     Route: 045
     Dates: start: 20060301, end: 20060401
  2. KLOR-CON [Concomitant]
  3. METHOTREXATE [Concomitant]
  4. HYDROCHLOROTHIAZIDE [Concomitant]
  5. LEVOXYL [Concomitant]
  6. FOLIC ACID [Concomitant]

REACTIONS (1)
  - DRUG INEFFECTIVE [None]
